FAERS Safety Report 16471830 (Version 1)
Quarter: 2019Q2

REPORT INFORMATION
  Report Type: Report from Study
  Country: None (occurrence: US)
  Receive Date: 20190624
  Receipt Date: 20190624
  Transmission Date: 20190711
  Serious: Yes (Other)
  Sender: FDA-Public Use
  Company Number: US-ABBVIE-19K-163-2823668-00

PATIENT
  Age: 52 Year
  Sex: Male

DRUGS (2)
  1. EFFEXOR [Suspect]
     Active Substance: VENLAFAXINE HYDROCHLORIDE
     Indication: PRODUCT USED FOR UNKNOWN INDICATION
     Route: 065
  2. HUMIRA [Suspect]
     Active Substance: ADALIMUMAB
     Indication: CROHN^S DISEASE
     Route: 058
     Dates: start: 20180528

REACTIONS (9)
  - Inflammation [Recovered/Resolved]
  - Psoriasis [Unknown]
  - Skin ulcer [Unknown]
  - Dry skin [Unknown]
  - Injection site pain [Not Recovered/Not Resolved]
  - Rotator cuff syndrome [Unknown]
  - Mast cell activation syndrome [Unknown]
  - Dermatitis [Unknown]
  - Drug ineffective [Not Recovered/Not Resolved]

NARRATIVE: CASE EVENT DATE: 20180528
